FAERS Safety Report 6206735-2 (Version None)
Quarter: 2009Q2

REPORT INFORMATION
  Report Type: 
  Country: None (occurrence: None)
  Receive Date: 20090528
  Receipt Date: 20090526
  Transmission Date: 20091009
  Serious: No
  Sender: FDA-Public Use
  Company Number: US-RB-003639-08

PATIENT
  Sex: Female
  Weight: 56.7 kg

DRUGS (3)
  1. SUBUTEX [Suspect]
     Route: 060
     Dates: start: 20080307
  2. SUBOXONE [Suspect]
     Route: 060
     Dates: end: 20080306
  3. VITAMIN TAB [Concomitant]
     Indication: PREGNANCY
     Dosage: DOSING INFORMATION UNKNOWN.
     Route: 065

REACTIONS (2)
  - DRUG EXPOSURE DURING PREGNANCY [None]
  - NO ADVERSE EVENT [None]
